FAERS Safety Report 9118391 (Version 1)
Quarter: 2013Q1

REPORT INFORMATION
  Report Type: Spontaneous
  Country: US (occurrence: None)
  Receive Date: 20130221
  Receipt Date: 20130221
  Transmission Date: 20140127
  Serious: Yes (Other)
  Sender: FDA-Public Use
  Company Number: None

PATIENT
  Age: 32 Year
  Sex: Male
  Weight: 92.53 kg

DRUGS (1)
  1. ECULIZUMAB [Suspect]
     Indication: PAROXYSMAL NOCTURNAL HAEMOGLOBINURIA
     Dosage: 900MG Q2W IV
     Route: 042
     Dates: start: 20110701, end: 20130215

REACTIONS (2)
  - Muscle spasms [None]
  - Arthralgia [None]
